FAERS Safety Report 17892847 (Version 1)
Quarter: 2020Q2

REPORT INFORMATION
  Report Type: Spontaneous
  Country: US (occurrence: US)
  Receive Date: 20200613
  Receipt Date: 20200613
  Transmission Date: 20200714
  Serious: Yes (Other)
  Sender: FDA-Public Use
  Company Number: NVSC2020US163345

PATIENT
  Age: 75 Year

DRUGS (1)
  1. BEOVU [Suspect]
     Active Substance: BROLUCIZUMAB-DBLL
     Indication: AGE-RELATED MACULAR DEGENERATION
     Dosage: 6 MG (ONE SINGLE DOSE)
     Route: 047
     Dates: start: 20200602, end: 20200610

REACTIONS (2)
  - Anterior chamber inflammation [Not Recovered/Not Resolved]
  - Anterior chamber cell [Not Recovered/Not Resolved]

NARRATIVE: CASE EVENT DATE: 20200602
